FAERS Safety Report 7475849-1 (Version None)
Quarter: 2011Q2

REPORT INFORMATION
  Report Type: 
  Country: None (occurrence: None)
  Receive Date: 20110512
  Receipt Date: 20110511
  Transmission Date: 20111010
  Serious: Yes (Death, Other)
  Sender: FDA-Public Use
  Company Number: NO-ABBOTT-11P-122-0724743-00

PATIENT
  Age: 40 Year
  Sex: Female

DRUGS (2)
  1. TAXOTERE [Interacting]
     Indication: BREAST CANCER
     Route: 042
  2. RITONAVIR [Suspect]
     Indication: HIV INFECTION

REACTIONS (5)
  - MULTI-ORGAN FAILURE [None]
  - SEPSIS [None]
  - DRUG INTERACTION [None]
  - NEUTROPENIA [None]
  - SKIN TOXICITY [None]
